FAERS Safety Report 5131072-7 (Version None)
Quarter: 2006Q3

REPORT INFORMATION
  Report Type: 
  Country: None (occurrence: None)
  Receive Date: 20060829
  Receipt Date: 20060614
  Transmission Date: 20061208
  Serious: No
  Sender: FDA-Public Use
  Company Number: S06-USA-02285-01

PATIENT
  Age: 70 Year
  Sex: Male

DRUGS (3)
  1. CAMPRAL [Suspect]
     Indication: ABSTAINS FROM ALCOHOL
     Dosage: 666 MG TID PO
     Route: 048
     Dates: start: 20060607, end: 20060612
  2. VIOKASE (PANCRELIPASE) [Concomitant]
  3. BLOOD PRESSURE MEDICATION (NOS) [Concomitant]

REACTIONS (2)
  - CONSTIPATION [None]
  - INSOMNIA [None]
